FAERS Safety Report 19988164 (Version 1)
Quarter: 2021Q4

REPORT INFORMATION
  Report Type: Spontaneous
  Country: JP (occurrence: JP)
  Receive Date: 20211022
  Receipt Date: 20211022
  Transmission Date: 20220303
  Serious: Yes (Other)
  Sender: FDA-Public Use
  Company Number: JP-ASTELLAS-2021JP019269

PATIENT
  Sex: Female

DRUGS (1)
  1. LINACLOTIDE [Suspect]
     Active Substance: LINACLOTIDE
     Indication: Product used for unknown indication
     Dosage: UNK UNK, UNKNOWN FREQ.
     Route: 048
     Dates: start: 202107

REACTIONS (2)
  - White blood cell count decreased [Unknown]
  - Pyrexia [Unknown]

NARRATIVE: CASE EVENT DATE: 20211006
